FAERS Safety Report 24979498 (Version 2)
Quarter: 2025Q3

REPORT INFORMATION
  Report Type: Report from Study
  Country: US (occurrence: US)
  Receive Date: 20250218
  Receipt Date: 20250809
  Transmission Date: 20251021
  Serious: Yes (Other)
  Sender: ALEXION PHARMACEUTICALS
  Company Number: US-ASTRAZENECA-202502USA012588US

PATIENT
  Age: 13 Year
  Sex: Female

DRUGS (1)
  1. STRENSIQ [Suspect]
     Active Substance: ASFOTASE ALFA
     Indication: Phosphorus metabolism disorder
     Dosage: 120 MILLIGRAM, TIW
     Route: 065

REACTIONS (7)
  - Deafness unilateral [Unknown]
  - Migraine [Unknown]
  - Joint injury [Unknown]
  - Fatigue [Unknown]
  - Muscular weakness [Unknown]
  - Injection site pain [Unknown]
  - Bone density decreased [Unknown]
